FAERS Safety Report 10020011 (Version 1)
Quarter: 2014Q1

REPORT INFORMATION
  Report Type: Spontaneous
  Country: US (occurrence: US)
  Receive Date: 20140318
  Receipt Date: 20140318
  Transmission Date: 20141002
  Serious: Yes (Hospitalization, Other)
  Sender: FDA-Public Use
  Company Number: US-B.I. PHARMACEUTICALS,INC./RIDGEFIELD-2014-BI-11259BP

PATIENT
  Sex: Female
  Weight: 97 kg

DRUGS (11)
  1. SPIRIVA [Suspect]
     Indication: ASTHMA
     Dosage: 18 MCG
     Route: 055
     Dates: start: 2012
  2. LISINOPRIL [Concomitant]
     Indication: HYPERTENSION
     Dosage: 5 MG
     Route: 048
  3. NORVASC [Concomitant]
     Indication: HYPERTENSION
     Dosage: 10 MG
     Route: 048
  4. COUMADIN [Concomitant]
     Indication: AORTIC VALVE DISEASE
     Dosage: 6 MG
     Route: 048
  5. XANAX [Concomitant]
     Indication: PHANTOM PAIN
     Dosage: 0.25 MG
     Route: 048
  6. XANAX [Concomitant]
     Indication: INSOMNIA
  7. ZOFRAN [Concomitant]
     Indication: NAUSEA
     Route: 048
  8. MOTRIN [Concomitant]
     Indication: PHANTOM PAIN
     Dosage: 1200 MG
     Route: 048
  9. TRAMADOL [Concomitant]
     Indication: PHANTOM PAIN
     Dosage: 200 MG
     Route: 048
  10. XOPENEX [Concomitant]
     Indication: ASTHMA
     Route: 055
  11. NOVOLOG [Concomitant]
     Indication: TYPE 2 DIABETES MELLITUS
     Dosage: FORMULAITON: SUBCUTANEOUS
     Route: 058

REACTIONS (5)
  - Gangrene [Recovered/Resolved]
  - Haemorrhage [Recovered/Resolved]
  - Haemorrhage [Recovered/Resolved]
  - Cataract [Recovered/Resolved with Sequelae]
  - Off label use [Unknown]
